FAERS Safety Report 4621819-8 (Version None)
Quarter: 2005Q1

REPORT INFORMATION
  Report Type: 
  Country: None (occurrence: None)
  Receive Date: 20050329
  Receipt Date: 20050317
  Transmission Date: 20050727
  Serious: Yes (Hospitalization)
  Sender: FDA-Public Use
  Company Number: 200510963FR

PATIENT
  Age: 94 Year
  Sex: Male

DRUGS (6)
  1. KETEK [Suspect]
     Indication: PNEUMONIA
     Route: 048
     Dates: start: 20041207, end: 20041212
  2. SINEMET [Concomitant]
     Indication: PARKINSON'S DISEASE
     Route: 048
  3. CLAMOXYL [Concomitant]
     Route: 048
     Dates: start: 20041204, end: 20041207
  4. BRICANYL [Concomitant]
     Route: 048
     Dates: start: 20041204, end: 20041206
  5. AMLOR [Concomitant]
     Route: 048
  6. LEPTICUR [Concomitant]
     Route: 048

REACTIONS (2)
  - GENERAL PHYSICAL HEALTH DETERIORATION [None]
  - LARYNGEAL DYSPNOEA [None]
